FAERS Safety Report 6739435-0 (Version None)
Quarter: 2010Q2

REPORT INFORMATION
  Report Type: 
  Country: None (occurrence: None)
  Receive Date: 20100525
  Receipt Date: 20100514
  Transmission Date: 20101027
  Serious: Yes (Death, Other)
  Sender: FDA-Public Use
  Company Number: JP-AMGEN-QUU413467

PATIENT
  Age: 63 Year
  Sex: Male

DRUGS (2)
  1. ENBREL [Suspect]
     Indication: RHEUMATOID ARTHRITIS
     Route: 058
     Dates: start: 20090715, end: 20100418
  2. PREDONINE [Concomitant]
     Dosage: NOT PROVIDED
     Route: 048

REACTIONS (3)
  - CEREBRAL HAEMORRHAGE [None]
  - LAMINAPLASTY [None]
  - SENSATION OF HEAVINESS [None]
